FAERS Safety Report 7344340-5 (Version None)
Quarter: 2011Q1

REPORT INFORMATION
  Report Type: 
  Country: None (occurrence: None)
  Receive Date: 20110310
  Receipt Date: 20101201
  Transmission Date: 20110831
  Serious: No
  Sender: FDA-Public Use
  Company Number: A0897307A

PATIENT
  Age: 48 Year
  Sex: Female

DRUGS (3)
  1. NICOTINE [Suspect]
     Route: 002
     Dates: start: 20101001
  2. NICORETTE [Suspect]
     Route: 002
     Dates: start: 20101001
  3. NICORETTE [Suspect]
     Route: 002
     Dates: start: 20101001

REACTIONS (2)
  - TINNITUS [None]
  - INSOMNIA [None]
